FAERS Safety Report 6020015-X (Version None)
Quarter: 2008Q4

REPORT INFORMATION
  Report Type: 
  Country: None (occurrence: None)
  Receive Date: 20081226
  Receipt Date: 20081219
  Transmission Date: 20090506
  Serious: Yes (Other)
  Sender: FDA-Public Use
  Company Number: US-BAYER-200837331NA

PATIENT
  Age: 29 Year
  Sex: Female
  Weight: 68 kg

DRUGS (1)
  1. MIRENA [Suspect]
     Indication: CONTRACEPTION
     Route: 015
     Dates: start: 20030101, end: 20060101

REACTIONS (7)
  - AMENORRHOEA [None]
  - COITAL BLEEDING [None]
  - MENSTRUATION IRREGULAR [None]
  - OEDEMA PERIPHERAL [None]
  - VAGINAL HAEMORRHAGE [None]
  - VOMITING [None]
  - WEIGHT INCREASED [None]
